FAERS Safety Report 5901983 (Version 5)
Quarter: 2014Q4

REPORT INFORMATION
  Report Type: Spontaneous
  Country: JP (occurrence: JP)
  Receive Date: 20051017
  Receipt Date: 20141027
  Transmission Date: 20150529
  Serious: Yes (Hospitalization)
  Sender: FDA-Public Use
  Company Number: JP-NOVOPROD-247641

PATIENT
  Age: 50 Year
  Sex: Male
  Weight: 74 kg

DRUGS (4)
  1. LANTUS [Concomitant]
     Active Substance: INSULIN GLARGINE
     Indication: INSULIN-REQUIRING TYPE 2 DIABETES MELLITUS
     Dosage: UNK
     Dates: start: 20030814
  2. PENFILL R CHU [Suspect]
     Active Substance: INSULIN HUMAN
     Indication: INSULIN-REQUIRING TYPE 2 DIABETES MELLITUS
     Dosage: 12 U, QD (4-4-4)
     Route: 058
     Dates: start: 20030528, end: 20030604
  3. METFORMIN [Concomitant]
     Active Substance: METFORMIN HYDROCHLORIDE
     Indication: INSULIN-REQUIRING TYPE 2 DIABETES MELLITUS
     Dosage: 500 MG, QD
     Route: 048
     Dates: start: 20030814
  4. PENFILL 30R CHU [Suspect]
     Active Substance: INSULIN HUMAN
     Indication: INSULIN-REQUIRING TYPE 2 DIABETES MELLITUS
     Dosage: 14-18 IU
     Route: 058
     Dates: start: 20030605, end: 20030731

REACTIONS (4)
  - Drug hypersensitivity [Not Recovered/Not Resolved]
  - Injection site erythema [Not Recovered/Not Resolved]
  - Blood glucose increased [Not Recovered/Not Resolved]
  - Injection site induration [Not Recovered/Not Resolved]

NARRATIVE: CASE EVENT DATE: 20030717
